FAERS Safety Report 15159217 (Version 3)
Quarter: 2018Q3

REPORT INFORMATION
  Report Type: Spontaneous
  Country: TR (occurrence: TR)
  Receive Date: 20180718
  Receipt Date: 20180807
  Transmission Date: 20181010
  Serious: Yes (Other)
  Sender: FDA-Public Use
  Company Number: TR-PFIZER INC-2018284825

PATIENT
  Age: 33 Year
  Sex: Female

DRUGS (2)
  1. DOSTINEX [Suspect]
     Active Substance: CABERGOLINE
     Dosage: A HALF OF A TABLET, MONTHLY
     Dates: start: 2016
  2. DOSTINEX [Suspect]
     Active Substance: CABERGOLINE
     Indication: PITUITARY TUMOUR
     Dosage: 3?4 TIMES A MONTH
     Dates: start: 2014

REACTIONS (5)
  - Drug dependence [Recovered/Resolved]
  - Bipolar disorder [Unknown]
  - Gambling disorder [Not Recovered/Not Resolved]
  - Substance dependence [Not Recovered/Not Resolved]
  - Abnormal behaviour [Unknown]

NARRATIVE: CASE EVENT DATE: 2017
